FAERS Safety Report 11899848 (Version 1)
Quarter: 2016Q1

REPORT INFORMATION
  Report Type: Spontaneous
  Country: US (occurrence: US)
  Receive Date: 20160108
  Receipt Date: 20160108
  Transmission Date: 20160526
  Serious: Yes (Hospitalization, Other)
  Sender: FDA-Public Use
  Company Number: US-BAYER-2016-000039

PATIENT
  Age: 55 Year
  Sex: Male
  Weight: 88.44 kg

DRUGS (3)
  1. PRILOSEC [Concomitant]
     Active Substance: OMEPRAZOLE MAGNESIUM
     Dosage: UNK
  2. BAYER GENUINE ASPIRIN [Suspect]
     Active Substance: ASPIRIN
     Indication: ANALGESIC THERAPY
     Dosage: 1-6 DF, PRN
     Route: 048
  3. HYDROCODONE [Concomitant]
     Active Substance: HYDROCODONE
     Dosage: UNK

REACTIONS (7)
  - Asthenia [None]
  - Gastrointestinal ulcer perforation [None]
  - Product use issue [None]
  - Haematemesis [None]
  - Diarrhoea haemorrhagic [None]
  - Gastric haemorrhage [None]
  - Nausea [None]

NARRATIVE: CASE EVENT DATE: 200909
